FAERS Safety Report 5952565-6 (Version None)
Quarter: 2008Q4

REPORT INFORMATION
  Report Type: 
  Country: None (occurrence: None)
  Receive Date: 20081029
  Receipt Date: 20080418
  Transmission Date: 20090506
  Serious: Yes (Other)
  Sender: FDA-Public Use
  Company Number: 47530

PATIENT
  Age: 12 Year
  Sex: Male

DRUGS (1)
  1. METHOTREXATE [Suspect]
     Indication: CROHN'S DISEASE
     Dosage: 1ML SQ
     Dates: start: 20080201

REACTIONS (2)
  - ABDOMINAL DISCOMFORT [None]
  - RASH [None]
